FAERS Safety Report 5664695-7 (Version None)
Quarter: 2008Q1

REPORT INFORMATION
  Report Type: 
  Country: None (occurrence: None)
  Receive Date: 20080312
  Receipt Date: 20080222
  Transmission Date: 20080703
  Serious: Yes (Death)
  Sender: FDA-Public Use
  Company Number: SPI200800092

PATIENT
  Sex: Male

DRUGS (1)
  1. AMITIZA [Suspect]
     Dosage: 24 MCG, ORAL
     Route: 048

REACTIONS (1)
  - DEATH [None]
